FAERS Safety Report 4349203-5 (Version None)
Quarter: 2004Q2

REPORT INFORMATION
  Report Type: 
  Country: None (occurrence: None)
  Receive Date: 20040428
  Receipt Date: 20040223
  Transmission Date: 20050107
  Serious: Yes (Hospitalization)
  Sender: FDA-Public Use
  Company Number: JP-ROCHE-359455

PATIENT
  Age: 64 Year
  Sex: Female

DRUGS (5)
  1. NICARDIPINE HCL [Suspect]
     Indication: AORTIC DISSECTION
     Route: 041
     Dates: start: 20040125, end: 20040130
  2. NITROGLYCERIN [Suspect]
     Indication: AORTIC DISSECTION
     Route: 041
     Dates: start: 20040125, end: 20040130
  3. NIFEDIPINE [Concomitant]
     Indication: AORTIC DISSECTION
     Route: 048
     Dates: start: 20040127, end: 20040130
  4. ENALAPRIL MALEATE [Concomitant]
     Indication: AORTIC DISSECTION
     Route: 048
     Dates: start: 20040129, end: 20040130
  5. METOPROLOL TARTRATE [Concomitant]
     Indication: AORTIC DISSECTION
     Route: 048
     Dates: start: 20040128, end: 20040130

REACTIONS (1)
  - INTESTINAL OBSTRUCTION [None]
